FAERS Safety Report 7650869-2 (Version None)
Quarter: 2011Q3

REPORT INFORMATION
  Report Type: 
  Country: None (occurrence: None)
  Receive Date: 20110802
  Receipt Date: 20110726
  Transmission Date: 20111222
  Serious: Yes (Other)
  Sender: FDA-Public Use
  Company Number: GB-PFIZER INC-2011156846

PATIENT
  Sex: Male

DRUGS (2)
  1. GENOTROPIN [Suspect]
     Indication: OFF LABEL USE
     Dosage: 2.5IU ALTERNATE DAYS
  2. GENOTROPIN [Suspect]
     Indication: HYPERTONIA

REACTIONS (3)
  - COUGH [None]
  - ANAPHYLACTIC SHOCK [None]
  - DYSPNOEA [None]
